FAERS Safety Report 25157792 (Version 2)
Quarter: 2025Q2

REPORT INFORMATION
  Report Type: Report from Study
  Country: US (occurrence: US)
  Receive Date: 20250403
  Receipt Date: 20250423
  Transmission Date: 20250717
  Serious: Yes (Hospitalization, Other)
  Sender: ABBVIE
  Company Number: US-ABBVIE-6206085

PATIENT
  Age: 41 Year
  Sex: Male
  Weight: 145 kg

DRUGS (2)
  1. SKYRIZI [Suspect]
     Active Substance: RISANKIZUMAB-RZAA
     Indication: Psoriasis
     Route: 058
     Dates: start: 20220822
  2. SKYRIZI [Suspect]
     Active Substance: RISANKIZUMAB-RZAA
     Route: 058
     Dates: start: 202502

REACTIONS (7)
  - Pancreatic carcinoma metastatic [Recovering/Resolving]
  - Blood glucose increased [Unknown]
  - White blood cell count increased [Not Recovered/Not Resolved]
  - Swelling face [Recovered/Resolved]
  - Blood potassium increased [Not Recovered/Not Resolved]
  - Vomiting [Recovered/Resolved]
  - Eye swelling [Recovered/Resolved]

NARRATIVE: CASE EVENT DATE: 20241001
